FAERS Safety Report 16305375 (Version 1)
Quarter: 2019Q2

REPORT INFORMATION
  Report Type: Report from Study
  Country: FR (occurrence: FR)
  Receive Date: 20190513
  Receipt Date: 20190513
  Transmission Date: 20190711
  Serious: Yes (Hospitalization)
  Sender: FDA-Public Use
  Company Number: FR-JNJFOC-20190502048

PATIENT
  Age: 33 Year
  Sex: Female
  Weight: 50 kg

DRUGS (2)
  1. STELARA [Suspect]
     Active Substance: USTEKINUMAB
     Indication: BEHCET^S SYNDROME
     Route: 058
     Dates: start: 20181203
  2. STELARA [Suspect]
     Active Substance: USTEKINUMAB
     Indication: BEHCET^S SYNDROME
     Route: 058
     Dates: start: 20181105

REACTIONS (1)
  - Infection [Recovered/Resolved]

NARRATIVE: CASE EVENT DATE: 20190221
